FAERS Safety Report 4365147-7 (Version None)
Quarter: 2004Q2

REPORT INFORMATION
  Report Type: 
  Country: None (occurrence: None)
  Receive Date: 20040525
  Receipt Date: 20040412
  Transmission Date: 20050107
  Serious: No
  Sender: FDA-Public Use
  Company Number: PHEH2004US02145

PATIENT
  Age: 64 Year
  Sex: Female

DRUGS (2)
  1. ZELNORM [Suspect]
     Indication: IRRITABLE BOWEL SYNDROME
     Dosage: EVERY OTHER DAY
     Dates: start: 20030501, end: 20031021
  2. ZOLOFT [Suspect]

REACTIONS (4)
  - ABDOMINAL PAIN [None]
  - DIARRHOEA [None]
  - RASH ERYTHEMATOUS [None]
  - RASH PRURITIC [None]
